FAERS Safety Report 8283216-6 (Version None)
Quarter: 2012Q2

REPORT INFORMATION
  Report Type: 
  Country: None (occurrence: None)
  Receive Date: 20120413
  Receipt Date: 20120404
  Transmission Date: 20120825
  Serious: Yes (Other)
  Sender: FDA-Public Use
  Company Number: US-ASTRAZENECA-2012SE21825

PATIENT
  Sex: Male

DRUGS (2)
  1. TOPROL-XL [Suspect]
     Indication: HYPERTENSION
     Route: 048
     Dates: start: 20120316, end: 20120403
  2. TOPROL-XL [Suspect]
     Route: 048
     Dates: start: 20120403

REACTIONS (6)
  - HYPOTENSION [None]
  - DRY EYE [None]
  - RENAL INJURY [None]
  - HEART RATE DECREASED [None]
  - FATIGUE [None]
  - BLOOD URINE PRESENT [None]
